FAERS Safety Report 6212810-9 (Version None)
Quarter: 2009Q2

REPORT INFORMATION
  Report Type: 
  Country: None (occurrence: None)
  Receive Date: 20090601
  Receipt Date: 20090527
  Transmission Date: 20091009
  Serious: Yes (Other)
  Sender: FDA-Public Use
  Company Number: A0786360A

PATIENT
  Age: 63 Year
  Sex: Female

DRUGS (1)
  1. ASPIRIN [Suspect]
     Indication: PAIN
     Dosage: SINGLE DOSE / ORAL
     Route: 048
     Dates: start: 20090101, end: 20090101

REACTIONS (5)
  - DEAFNESS TRANSITORY [None]
  - EAR DISCOMFORT [None]
  - ERYTHEMA [None]
  - HYPERSENSITIVITY [None]
  - PARAESTHESIA [None]
